FAERS Safety Report 24891519 (Version 1)
Quarter: 2025Q1

REPORT INFORMATION
  Report Type: Spontaneous
  Country: CZ (occurrence: CZ)
  Receive Date: 20250127
  Receipt Date: 20250127
  Transmission Date: 20250408
  Serious: Yes (Death, Hospitalization)
  Sender: TEVA
  Company Number: CZ-TEVA-VS-3290239

PATIENT
  Age: 63 Year
  Sex: Male

DRUGS (4)
  1. MYCOPHENOLATE MOFETIL [Suspect]
     Active Substance: MYCOPHENOLATE MOFETIL
     Indication: Immunosuppressant drug therapy
     Route: 065
     Dates: start: 2012
  2. PREDNISONE [Suspect]
     Active Substance: PREDNISONE
     Indication: Immunosuppressant drug therapy
     Route: 065
     Dates: start: 2012
  3. PIPERACILLIN AND TAZOBACTAM [Concomitant]
     Active Substance: PIPERACILLIN SODIUM\TAZOBACTAM SODIUM
     Indication: Evidence based treatment
     Route: 042
     Dates: start: 2012
  4. PROGRAF [Suspect]
     Active Substance: TACROLIMUS
     Indication: Immunosuppressant drug therapy
     Route: 065
     Dates: start: 2012

REACTIONS (11)
  - Sepsis [Fatal]
  - Bronchopulmonary aspergillosis [Recovering/Resolving]
  - Escherichia infection [Fatal]
  - Pneumonia [Fatal]
  - Pseudomonas infection [Fatal]
  - Neutropenia [Fatal]
  - Leukopenia [Fatal]
  - Abscess [Fatal]
  - Respiratory failure [Fatal]
  - Cytomegalovirus infection [Unknown]
  - Necrosis [Fatal]

NARRATIVE: CASE EVENT DATE: 20120101
